FAERS Safety Report 6955723-7 (Version None)
Quarter: 2010Q3

REPORT INFORMATION
  Report Type: 
  Country: None (occurrence: None)
  Receive Date: 20100830
  Receipt Date: 20100816
  Transmission Date: 20110219
  Serious: Yes (Hospitalization, Other)
  Sender: FDA-Public Use
  Company Number: JP-ROCHE-712656

PATIENT
  Sex: Female
  Weight: 48 kg

DRUGS (2)
  1. HERCEPTIN [Suspect]
     Indication: BREAST CANCER
     Route: 041
     Dates: start: 20090406, end: 20090406
  2. HERCEPTIN [Suspect]
     Route: 041
     Dates: start: 20090427, end: 20090629

REACTIONS (5)
  - ATRIOVENTRICULAR BLOCK COMPLETE [None]
  - BUNDLE BRANCH BLOCK LEFT [None]
  - BUNDLE BRANCH BLOCK RIGHT [None]
  - CARDIAC FAILURE CONGESTIVE [None]
  - CARDIOMYOPATHY [None]
